FAERS Safety Report 6267850-0 (Version None)
Quarter: 2009Q3

REPORT INFORMATION
  Report Type: 
  Country: None (occurrence: None)
  Receive Date: 20090714
  Receipt Date: 20090706
  Transmission Date: 20100115
  Serious: Yes (Hospitalization, Other)
  Sender: FDA-Public Use
  Company Number: US-AVENTIS-200914232US

PATIENT
  Sex: Male
  Weight: 78.6 kg

DRUGS (14)
  1. APIDRA [Suspect]
     Dosage: DOSE: 1-10 UNITS SLIDING SCALE BEFORE MEALS, BASED ON PREMEAL BLOOD GLUCOSE
     Route: 051
     Dates: start: 20070801, end: 20090601
  2. OPTICLIK (INSULIN INJECTION PEN) [Suspect]
     Dates: start: 20070101, end: 20090601
  3. LANTUS [Suspect]
     Indication: DIABETES MELLITUS
     Route: 058
     Dates: start: 20060101
  4. ASPIRIN [Concomitant]
     Route: 048
  5. ISOSORBIDE MONONITRATE [Concomitant]
     Route: 048
  6. LISINOPRIL [Concomitant]
     Indication: BLOOD PRESSURE
     Route: 048
     Dates: start: 20080301
  7. AMLODIPINE BESYLATE [Concomitant]
     Route: 048
  8. HYDROCHLOROTHIAZIDE [Concomitant]
     Indication: BLOOD PRESSURE
     Route: 048
     Dates: start: 20080301
  9. LEVOTHYROXINE SODIUM [Concomitant]
     Indication: HYPOTHYROIDISM
     Route: 048
     Dates: start: 20080301
  10. VYTORIN [Concomitant]
     Indication: BLOOD CHOLESTEROL ABNORMAL
     Dosage: DOSE: 10/40
     Route: 048
     Dates: start: 20080501
  11. PLAVIX [Concomitant]
     Route: 048
     Dates: start: 20080401
  12. METOPROLOL TARTRATE [Concomitant]
     Indication: BLOOD PRESSURE
     Route: 048
     Dates: start: 20080401
  13. NITROGLYCERIN [Concomitant]
     Dates: start: 20080101
  14. NOVOLIN R [Concomitant]
     Dosage: DOSE: 2-10 SLIDING SCALE

REACTIONS (10)
  - AMNESIA [None]
  - CONFUSIONAL STATE [None]
  - DEVICE MALFUNCTION [None]
  - GLYCOSYLATED HAEMOGLOBIN INCREASED [None]
  - HYPERGLYCAEMIA [None]
  - HYPOGLYCAEMIA [None]
  - HYPOGLYCAEMIC UNCONSCIOUSNESS [None]
  - NECK INJURY [None]
  - ROAD TRAFFIC ACCIDENT [None]
  - THROMBOCYTOPENIA [None]
